FAERS Safety Report 4363265-0 (Version None)
Quarter: 2004Q2

REPORT INFORMATION
  Report Type: 
  Country: None (occurrence: None)
  Receive Date: 20040517
  Receipt Date: 20040119
  Transmission Date: 20050107
  Serious: No
  Sender: FDA-Public Use
  Company Number: S04-USA-00266-01

PATIENT
  Age: 70 Year
  Sex: Male

DRUGS (3)
  1. NAMENDA [Suspect]
     Indication: PARKINSON'S DISEASE
     Dosage: 2.5 MG BID PO
     Route: 048
     Dates: start: 20040113
  2. REMINYL [Concomitant]
  3. SEROQUEL [Concomitant]

REACTIONS (1)
  - ORTHOSTATIC HYPOTENSION [None]
